FAERS Safety Report 24349754 (Version 2)
Quarter: 2025Q3

REPORT INFORMATION
  Report Type: Report from Study
  Country: BR (occurrence: BR)
  Receive Date: 20240923
  Receipt Date: 20250903
  Transmission Date: 20251021
  Serious: No
  Sender: TAKEDA
  Company Number: BR-TAKEDA-2024TUS020299

PATIENT
  Sex: Female

DRUGS (1)
  1. VEDOLIZUMAB [Suspect]
     Active Substance: VEDOLIZUMAB
     Indication: Crohn^s disease

REACTIONS (4)
  - Inappropriate schedule of product administration [Unknown]
  - Suture rupture [Unknown]
  - Nasopharyngitis [Unknown]
  - Pyrexia [Unknown]
